FAERS Safety Report 14820354 (Version 1)
Quarter: 2018Q2

REPORT INFORMATION
  Report Type: Spontaneous
  Country: US (occurrence: US)
  Receive Date: 20180427
  Receipt Date: 20180427
  Transmission Date: 20180711
  Serious: Yes (Disabling)
  Sender: FDA-Public Use
  Company Number: PHEH2018US015688

PATIENT
  Age: 68 Year
  Weight: 86.18 kg

DRUGS (1)
  1. RECLAST [Suspect]
     Active Substance: ZOLEDRONIC ACID
     Indication: OSTEOPOROSIS
     Dosage: UNK UNK, Q12MO
     Route: 042
     Dates: start: 20180410

REACTIONS (7)
  - Pain in extremity [Recovering/Resolving]
  - Scleral disorder [Recovering/Resolving]
  - Eye pain [Recovering/Resolving]
  - Intraocular pressure test abnormal [Recovering/Resolving]
  - Vision blurred [Recovering/Resolving]
  - Eye swelling [Recovering/Resolving]
  - Myalgia [Recovering/Resolving]

NARRATIVE: CASE EVENT DATE: 20180411
